FAERS Safety Report 13448412 (Version 1)
Quarter: 2017Q2

REPORT INFORMATION
  Report Type: Spontaneous
  Country: US (occurrence: US)
  Receive Date: 20170417
  Receipt Date: 20170417
  Transmission Date: 20170830
  Serious: No
  Sender: FDA-Public Use
  Company Number: US-ASTRAZENECA-2017SE38310

PATIENT
  Age: 73 Year
  Sex: Female

DRUGS (3)
  1. SINGULAIR [Concomitant]
     Active Substance: MONTELUKAST SODIUM
     Route: 048
  2. PRILOSEC OTC [Suspect]
     Active Substance: OMEPRAZOLE MAGNESIUM
     Indication: GASTROOESOPHAGEAL REFLUX DISEASE
     Route: 048
  3. CLARITIN [Concomitant]
     Active Substance: LORATADINE

REACTIONS (3)
  - Glossodynia [Recovered/Resolved]
  - Lip pain [Recovered/Resolved]
  - Reaction to drug excipients [Recovered/Resolved]
